FAERS Safety Report 14212634 (Version 2)
Quarter: 2018Q1

REPORT INFORMATION
  Report Type: Spontaneous
  Country: NL (occurrence: NL)
  Receive Date: 20171122
  Receipt Date: 20180214
  Transmission Date: 20180508
  Serious: Yes (Hospitalization)
  Sender: FDA-Public Use
  Company Number: NL-ENDO PHARMACEUTICALS INC-2017-006060

PATIENT
  Age: 41 Year
  Sex: Female
  Weight: 63 kg

DRUGS (11)
  1. VITAMIN E [Concomitant]
     Active Substance: .ALPHA.-TOCOPHEROL
     Indication: PRODUCT USED FOR UNKNOWN INDICATION
     Dosage: UNK UNK, UNKNOWN
     Route: 065
     Dates: start: 20170517, end: 20170911
  2. DICLOFENAC                         /00372302/ [Concomitant]
     Active Substance: DICLOFENAC
     Indication: PRODUCT USED FOR UNKNOWN INDICATION
     Dosage: 1 DF, BID, TOOK TWICE DURING DAYS BEFORE HOSPITALIZATION
     Route: 048
     Dates: start: 20170815, end: 20170816
  3. EZETIMIB SANDOZ [Concomitant]
     Indication: TYPE IIA HYPERLIPIDAEMIA
     Dosage: 1 DF, DAILY
     Route: 048
     Dates: start: 2014
  4. IBUPROFEN. [Suspect]
     Active Substance: IBUPROFEN
     Indication: PAIN
     Dosage: UNK UNK, UNKNOWN
     Route: 065
     Dates: start: 20170516, end: 20170517
  5. AMLODIPINE [Concomitant]
     Active Substance: AMLODIPINE BESYLATE
     Indication: HYPERTENSION
     Dosage: 1 DF, DAILY
     Route: 048
     Dates: start: 20170404, end: 20170616
  6. HYDROCHLOROTHIAZIDE. [Concomitant]
     Active Substance: HYDROCHLOROTHIAZIDE
     Indication: HYPERTENSION
     Dosage: 1 DF, DAILY
     Route: 048
     Dates: start: 20170616, end: 20170815
  7. IBUPROFEN. [Suspect]
     Active Substance: IBUPROFEN
     Dosage: 400 MG, UNKNOWN
     Route: 048
     Dates: start: 20170812, end: 20170813
  8. LOJUXTA [Suspect]
     Active Substance: LOMITAPIDE MESYLATE
     Dosage: 1 DF, DAILY
     Route: 048
     Dates: start: 20170617, end: 20170911
  9. OMEGA 3-6-9                        /01333901/ [Concomitant]
     Active Substance: OMEGA-3 FATTY ACIDS
     Indication: PRODUCT USED FOR UNKNOWN INDICATION
     Dosage: UNK UNK, UNKNOWN
     Route: 065
     Dates: start: 20170517, end: 20170911
  10. ATORVASTATIN CALCIUM. [Concomitant]
     Active Substance: ATORVASTATIN CALCIUM
     Indication: TYPE IIA HYPERLIPIDAEMIA
     Dosage: 1 DF, DAILY
     Route: 048
     Dates: start: 2000
  11. LOJUXTA [Suspect]
     Active Substance: LOMITAPIDE MESYLATE
     Indication: TYPE IIA HYPERLIPIDAEMIA
     Dosage: 1 DF, DAILY
     Route: 048
     Dates: start: 20170516, end: 20170517

REACTIONS (5)
  - Acute kidney injury [Recovered/Resolved]
  - Haematochezia [Recovered/Resolved]
  - Weight increased [Recovered/Resolved]
  - Tubulointerstitial nephritis [Unknown]
  - Gastrointestinal toxicity [Recovered/Resolved]

NARRATIVE: CASE EVENT DATE: 2017
